FAERS Safety Report 23424305 (Version 1)
Quarter: 2024Q1

REPORT INFORMATION
  Report Type: Report from Study
  Country: US (occurrence: US)
  Receive Date: 20240120
  Receipt Date: 20240120
  Transmission Date: 20240409
  Serious: Yes (Hospitalization, Other)
  Sender: FDA-Public Use
  Company Number: US-ABBVIE-5597155

PATIENT
  Age: 94 Year
  Sex: Male

DRUGS (1)
  1. CREON [Suspect]
     Active Substance: PANCRELIPASE AMYLASE\PANCRELIPASE LIPASE\PANCRELIPASE PROTEASE
     Indication: Pancreatic failure
     Dosage: FORM STRENGTH: 36000 UNIT, 1 CAPSULE EACH MEAL AND BIG SNACK
     Route: 065
     Dates: start: 20231222

REACTIONS (8)
  - Gastric cancer [Not Recovered/Not Resolved]
  - Urinary tract obstruction [Unknown]
  - Bladder discomfort [Unknown]
  - Colon cancer [Not Recovered/Not Resolved]
  - Product use complaint [Not Recovered/Not Resolved]
  - Back pain [Unknown]
  - Abdominal pain upper [Unknown]
  - Wrong technique in product usage process [Not Recovered/Not Resolved]

NARRATIVE: CASE EVENT DATE: 20231201
